FAERS Safety Report 4558492-3 (Version None)
Quarter: 2005Q1

REPORT INFORMATION
  Report Type: 
  Country: None (occurrence: None)
  Receive Date: 20050119
  Receipt Date: 20041214
  Transmission Date: 20050727
  Serious: Yes (Hospitalization, Other)
  Sender: FDA-Public Use
  Company Number: US_0501109967

PATIENT
  Age: 33 Year
  Sex: Male
  Weight: 89 kg

DRUGS (6)
  1. ZYPREXA [Suspect]
     Indication: SCHIZOPHRENIA
     Dates: start: 19970523, end: 20031214
  2. TRAZODONE HCL [Concomitant]
  3. AVANDIA [Concomitant]
  4. RISPERDAL [Concomitant]
  5. PROTONIX [Concomitant]
  6. MILK OF MAGNESIA [Concomitant]

REACTIONS (34)
  - ANGER [None]
  - BACK PAIN [None]
  - BLOOD ALKALINE PHOSPHATASE INCREASED [None]
  - BLOOD KETONE BODY INCREASED [None]
  - BLOOD PRESSURE SYSTOLIC INCREASED [None]
  - BLOOD UREA INCREASED [None]
  - CHEST PAIN [None]
  - DEHYDRATION [None]
  - DELUSION [None]
  - DIABETES MELLITUS NON-INSULIN-DEPENDENT [None]
  - EAR PAIN [None]
  - ELECTROLYTE IMBALANCE [None]
  - FOREIGN BODY TRAUMA [None]
  - HALLUCINATIONS, MIXED [None]
  - HERPES SIMPLEX [None]
  - HYPEROSMOLAR STATE [None]
  - HYPOKALAEMIA [None]
  - HYPONATRAEMIA [None]
  - LIPASE INCREASED [None]
  - MUSCULOSKELETAL PAIN [None]
  - NAUSEA [None]
  - NEUROPATHY PERIPHERAL [None]
  - PAIN IN EXTREMITY [None]
  - PANCREATITIS [None]
  - PENIS DISORDER [None]
  - PHARYNGOLARYNGEAL PAIN [None]
  - PYREXIA [None]
  - RESPIRATORY RATE INCREASED [None]
  - SKIN LESION [None]
  - SUICIDAL IDEATION [None]
  - TACHYCARDIA [None]
  - TREATMENT NONCOMPLIANCE [None]
  - VOMITING [None]
  - XANTHOPSIA [None]
